FAERS Safety Report 8200513-0 (Version None)
Quarter: 2012Q1

REPORT INFORMATION
  Report Type: 
  Country: None (occurrence: None)
  Receive Date: 20120301
  Receipt Date: 20120221
  Transmission Date: 20120608
  Serious: Yes (Hospitalization, Other)
  Sender: FDA-Public Use
  Company Number: 2012030979

PATIENT
  Age: 42 Year
  Sex: Female
  Weight: 69.8539 kg

DRUGS (15)
  1. HIZENTRA [Suspect]
  2. SEREVENT [Concomitant]
  3. HIZENTRA [Suspect]
  4. HIZENTRA [Suspect]
  5. XOPENEX [Concomitant]
  6. HIZENTRA [Suspect]
  7. HIZENTRA [Suspect]
  8. HIZENTRA [Suspect]
  9. HIZENTRA [Suspect]
     Indication: IMMUNODEFICIENCY COMMON VARIABLE
     Dosage: SEE IMAGE SUBCUTANEOUS
     Route: 058
  10. HIZENTRA [Suspect]
  11. SINGULAIR [Concomitant]
  12. PRAVASTATIN (PARAVASTATIN) [Concomitant]
  13. BACTRIM [Concomitant]
  14. PREDNISONE TAB [Concomitant]
  15. ACETAMINOPHEN [Concomitant]

REACTIONS (4)
  - RESPIRATORY TRACT INFECTION [None]
  - SKIN INFECTION [None]
  - RASH [None]
  - SINUSITIS [None]
